FAERS Safety Report 14098838 (Version 1)
Quarter: 2017Q4

REPORT INFORMATION
  Report Type: Spontaneous
  Country: DK (occurrence: DK)
  Receive Date: 20171017
  Receipt Date: 20171017
  Transmission Date: 20180321
  Serious: Yes (Disabling)
  Sender: FDA-Public Use
  Company Number: DK-TEVA-814593ACC

PATIENT
  Age: 42 Year
  Sex: Female

DRUGS (1)
  1. ISOTRETINOIN ^ACTAVIS^ [Suspect]
     Active Substance: ISOTRETINOIN
     Indication: ROSACEA
     Dosage: 20 MILLIGRAM DAILY;
     Route: 048
     Dates: start: 20150528, end: 201510

REACTIONS (4)
  - Myositis [Not Recovered/Not Resolved]
  - Fatigue [Not Recovered/Not Resolved]
  - Fibromyalgia [Not Recovered/Not Resolved]
  - Myalgia [Not Recovered/Not Resolved]

NARRATIVE: CASE EVENT DATE: 20151010
